FAERS Safety Report 23058514 (Version 2)
Quarter: 2023Q4

REPORT INFORMATION
  Report Type: Spontaneous
  Country: US (occurrence: US)
  Receive Date: 20231012
  Receipt Date: 20231027
  Transmission Date: 20240109
  Serious: Yes (Hospitalization, Other)
  Sender: FDA-Public Use
  Company Number: US-Accord-383177

PATIENT
  Age: 71 Year
  Sex: Male

DRUGS (2)
  1. QUETIAPINE [Suspect]
     Active Substance: QUETIAPINE
     Indication: Dementia with Lewy bodies
     Dosage: AT BEDTIME, LATER TITRATED DOWN
  2. RIVASTIGMINE [Suspect]
     Active Substance: RIVASTIGMINE
     Indication: Dementia with Lewy bodies
     Dosage: AT BEDTIME

REACTIONS (6)
  - Agitation [Unknown]
  - Tic [Unknown]
  - Off label use [Unknown]
  - Paranoia [Unknown]
  - Hallucination [Unknown]
  - Somnolence [Recovering/Resolving]
